FAERS Safety Report 17284562 (Version 1)
Quarter: 2020Q1

REPORT INFORMATION
  Report Type: Spontaneous
  Country: None (occurrence: US)
  Receive Date: 20200117
  Receipt Date: 20200117
  Transmission Date: 20200409
  Serious: Yes (Death)
  Sender: FDA-Public Use
  Company Number: US-JACOBUS PHARMACEUTICAL COMPANY, INC.-2079140

PATIENT
  Age: 58 Year
  Sex: Male

DRUGS (4)
  1. SULFAMETHOXAZOLE AND TRIMETHOPRIM [Suspect]
     Active Substance: SULFAMETHOXAZOLE\TRIMETHOPRIM
  2. DAPSONE. [Suspect]
     Active Substance: DAPSONE
  3. ANITHISTAMINES [Concomitant]
  4. CHOLESTYRAMINE. [Concomitant]
     Active Substance: CHOLESTYRAMINE

REACTIONS (3)
  - Death [None]
  - Pruritus [None]
  - Jaundice [None]
